FAERS Safety Report 20010297 (Version 1)
Quarter: 2021Q4

REPORT INFORMATION
  Report Type: Spontaneous
  Country: US (occurrence: US)
  Receive Date: 20211029
  Receipt Date: 20211029
  Transmission Date: 20220304
  Serious: Yes (unspecified)
  Sender: FDA-Public Use
  Company Number: None

PATIENT
  Age: 68 Year
  Sex: Male
  Weight: 67.5 kg

DRUGS (1)
  1. PRALUENT [Suspect]
     Active Substance: ALIROCUMAB
     Indication: Blood cholesterol increased
     Dosage: ?          QUANTITY:1 INJECTION(S);OTHER FREQUENCY:EVERY 2 WEEKS;
     Route: 058
     Dates: start: 20210927, end: 20211016

REACTIONS (4)
  - Hypoaesthesia [None]
  - Paraesthesia [None]
  - Hypersensitivity [None]
  - Anxiety [None]

NARRATIVE: CASE EVENT DATE: 20210927
